FAERS Safety Report 5346002-2 (Version None)
Quarter: 2007Q2

REPORT INFORMATION
  Report Type: 
  Country: None (occurrence: None)
  Receive Date: 20070426
  Receipt Date: 20061030
  Transmission Date: 20071010
  Serious: Yes (Hospitalization)
  Sender: FDA-Public Use
  Company Number: US-JNJFOC-20060906541

PATIENT
  Age: 77 Year
  Sex: Male
  Weight: 81.6475 kg

DRUGS (9)
  1. RAZADYNE [Suspect]
     Indication: DEMENTIA
     Dosage: 8 MG, 1 IN 1 DAY, ORAL
     Route: 048
     Dates: start: 20060728, end: 20060729
  2. PLAVIX [Concomitant]
  3. ASPIRIN [Concomitant]
  4. GLYBURIDE [Concomitant]
  5. GLUCOPHAGE [Concomitant]
  6. HYDROCHLOROTHIAZIDE [Concomitant]
  7. OMEPRAZOLE [Concomitant]
  8. PROPRANOLOL [Concomitant]
  9. QUINAPRIL HCL [Concomitant]

REACTIONS (1)
  - HEART RATE DECREASED [None]
